FAERS Safety Report 7292784-2 (Version None)
Quarter: 2011Q1

REPORT INFORMATION
  Report Type: 
  Country: None (occurrence: None)
  Receive Date: 20110215
  Receipt Date: 20110207
  Transmission Date: 20110831
  Serious: Yes (Other)
  Sender: FDA-Public Use
  Company Number: US-RB-020716-11

PATIENT
  Age: 73 Year
  Sex: Female

DRUGS (1)
  1. MUCINEX UNKNOWN SIZE [Suspect]
     Dosage: TWO TABLETS TAKEN IN THE MORNING AND EVENING SINCE 31-JAN-2011, LAST DOSE OF 1 TABLET ON 07-FEB-2011
     Route: 048

REACTIONS (4)
  - HAEMATEMESIS [None]
  - INAPPROPRIATE SCHEDULE OF DRUG ADMINISTRATION [None]
  - ABDOMINAL DISCOMFORT [None]
  - EXPIRED DRUG ADMINISTERED [None]
